FAERS Safety Report 22184217 (Version 3)
Quarter: 2023Q2

REPORT INFORMATION
  Report Type: Spontaneous
  Country: US (occurrence: US)
  Receive Date: 20230407
  Receipt Date: 20230512
  Transmission Date: 20230722
  Serious: No
  Sender: FDA-Public Use
  Company Number: US-HETERO-HET2023US00795

PATIENT
  Sex: Female
  Weight: 63.492 kg

DRUGS (4)
  1. LOSARTAN [Interacting]
     Active Substance: LOSARTAN
     Indication: Blood pressure abnormal
     Dosage: 25 MILLIGRAM, Q.A.M.
     Route: 048
     Dates: start: 20230328
  2. LOSARTAN [Interacting]
     Active Substance: LOSARTAN
     Dosage: 50 MILLIGRAM, BID
     Route: 065
  3. CLONAZEPAM [Concomitant]
     Active Substance: CLONAZEPAM
     Indication: Product used for unknown indication
     Dosage: UNK
     Route: 065
  4. NP THYROID [Concomitant]
     Active Substance: LEVOTHYROXINE\LIOTHYRONINE
     Indication: Product used for unknown indication
     Dosage: UNK
     Route: 065

REACTIONS (3)
  - Metamorphopsia [Not Recovered/Not Resolved]
  - Dry eye [Recovered/Resolved]
  - Vision blurred [Not Recovered/Not Resolved]
